FAERS Safety Report 21572153 (Version 1)
Quarter: 2022Q4

REPORT INFORMATION
  Report Type: Report from Study
  Country: CA (occurrence: CA)
  Receive Date: 20221109
  Receipt Date: 20221109
  Transmission Date: 20230113
  Serious: Yes (Other)
  Sender: FDA-Public Use
  Company Number: CA-ABBVIE-4193318

PATIENT
  Sex: Female

DRUGS (1)
  1. HUMIRA [Suspect]
     Active Substance: ADALIMUMAB
     Indication: Crohn^s disease
     Dosage: HUMIRA 40MG/0.8ML
     Route: 058
     Dates: start: 20090212

REACTIONS (2)
  - Haemorrhoids [Unknown]
  - Fatigue [Not Recovered/Not Resolved]
